FAERS Safety Report 5390344-1 (Version None)
Quarter: 2007Q3

REPORT INFORMATION
  Report Type: 
  Country: None (occurrence: None)
  Receive Date: 20070718
  Receipt Date: 20070710
  Transmission Date: 20080115
  Serious: Yes (Hospitalization, Other)
  Sender: FDA-Public Use
  Company Number: JP-SANOFI-SYNTHELABO-F01200502867

PATIENT
  Sex: Female

DRUGS (9)
  1. FLAGYL [Concomitant]
     Route: 048
     Dates: start: 20060130, end: 20060201
  2. DALACIN [Concomitant]
     Route: 048
     Dates: start: 20060130, end: 20060201
  3. POLYMYXIN B SULFATE [Concomitant]
     Route: 048
     Dates: start: 20060130, end: 20060201
  4. DIFLUCAN [Concomitant]
     Indication: SEPSIS
     Route: 042
     Dates: start: 20060130, end: 20060201
  5. GAMM-VENIN [Concomitant]
     Indication: SEPSIS
     Route: 042
     Dates: start: 20060130, end: 20060130
  6. MEROPEN [Concomitant]
     Indication: SEPSIS
     Route: 042
     Dates: start: 20060119, end: 20060201
  7. LEUCOVORIN CALCIUM [Suspect]
     Route: 042
     Dates: start: 20050920, end: 20050921
  8. FLUOROURACIL [Suspect]
     Dosage: 530MG/BODY IN BOLUS THEN 800MG/BODY AS CONTINUOUS INFUSION ON DAYS 1 AND 2) (FOLFOX-4, Q2W
     Route: 040
     Dates: start: 20050920, end: 20050921
  9. OXALIPLATIN [Suspect]
     Indication: COLON CANCER
     Route: 042
     Dates: start: 20050920, end: 20050920

REACTIONS (5)
  - DISSEMINATED INTRAVASCULAR COAGULATION [None]
  - HAEMOGLOBIN DECREASED [None]
  - LEUKOPENIA [None]
  - NEUTROPENIA [None]
  - THROMBOCYTOPENIA [None]
